FAERS Safety Report 16235458 (Version 2)
Quarter: 2019Q2

REPORT INFORMATION
  Report Type: Spontaneous
  Country: GB (occurrence: GB)
  Receive Date: 20190424
  Receipt Date: 20190509
  Transmission Date: 20190711
  Serious: Yes (Other)
  Sender: FDA-Public Use
  Company Number: GB-BIOGEN-2019BI00727055

PATIENT
  Age: 8 Month
  Sex: Female
  Weight: 7.8 kg

DRUGS (1)
  1. SPINRAZA [Suspect]
     Active Substance: NUSINERSEN
     Indication: SPINAL MUSCULAR ATROPHY
     Dosage: FIRRST DOSE: 13 DEC 2018, SECOND DOSE: 27 DEC 2018
     Route: 037
     Dates: start: 20181213

REACTIONS (3)
  - Respiratory arrest [Unknown]
  - Feeling abnormal [Unknown]
  - Rhinovirus infection [Unknown]

NARRATIVE: CASE EVENT DATE: 20181218
